FAERS Safety Report 9775960 (Version 3)
Quarter: 2014Q1

REPORT INFORMATION
  Report Type: Report from Study
  Country: US (occurrence: US)
  Receive Date: 20131220
  Receipt Date: 20140113
  Transmission Date: 20141002
  Serious: Yes (Hospitalization)
  Sender: FDA-Public Use
  Company Number: US-ABBVIE-13P-163-1168067-00

PATIENT
  Age: 60 Year
  Sex: Female

DRUGS (23)
  1. HUMIRA [Suspect]
     Indication: RHEUMATOID ARTHRITIS
     Dates: start: 20130911, end: 201310
  2. ANTIBIOTICS [Suspect]
     Indication: PRODUCT USED FOR UNKNOWN INDICATION
  3. ASA [Concomitant]
     Indication: PROPHYLAXIS
     Dosage: 325 MG DAILY
  4. KLONOPIN [Concomitant]
     Indication: ANXIETY
     Dosage: 1 MG DAILY
  5. DIOVAN [Concomitant]
     Indication: HYPERTENSION
     Dosage: 40 MG DAILY
  6. FLUOXENTINE [Concomitant]
     Indication: DEPRESSION
     Dosage: 40 MG DAILY
  7. GABAPENTIN [Concomitant]
     Indication: PAIN
     Dosage: 100 MG DAILY
  8. GABAPENTIN [Concomitant]
     Indication: SENSATION OF HEAVINESS
  9. ISOSORBIDE MONONITRATE [Concomitant]
     Indication: ANGINA PECTORIS
     Dosage: 120 MG 24 HOUR TAB
  10. LASIX [Concomitant]
     Indication: BLOOD PRESSURE
  11. LASIX [Concomitant]
     Indication: POLYURIA
  12. LEFLUNOMIDE [Concomitant]
     Indication: ARTHRITIS
  13. METOPROLOL [Concomitant]
     Indication: BLOOD PRESSURE
  14. OMEPRAZOLE [Concomitant]
     Indication: GASTROOESOPHAGEAL REFLUX DISEASE
  15. PRAVASTATIN [Concomitant]
     Indication: BLOOD CHOLESTEROL
     Dosage: 80 MG DAILY
  16. VITAMIN D [Concomitant]
     Indication: VITAMIN D DECREASED
  17. UNKNOWN MEDICATION [Concomitant]
     Indication: PAIN
     Dosage: AT BEDTIME
  18. NITROGLYCERIN [Concomitant]
     Indication: ANGINA PECTORIS
  19. ZOLPIDEM [Concomitant]
     Indication: INSOMNIA
  20. REGLAN [Concomitant]
     Indication: GASTRIC DISORDER
  21. CLONIDINE [Concomitant]
     Indication: PRODUCT USED FOR UNKNOWN INDICATION
  22. FENTANYL PATCH [Concomitant]
     Indication: PAIN
  23. PERCOCET [Concomitant]
     Indication: PAIN
     Dosage: FOUR TIMES DAILY

REACTIONS (8)
  - Cough [Recovering/Resolving]
  - Sputum discoloured [Recovering/Resolving]
  - Dysphagia [Recovering/Resolving]
  - Tongue discolouration [Recovering/Resolving]
  - Upper respiratory tract infection [Not Recovered/Not Resolved]
  - Furuncle [Recovering/Resolving]
  - Dry mouth [Not Recovered/Not Resolved]
  - Drug ineffective [Unknown]
